FAERS Safety Report 8773572 (Version 1)
Quarter: 2012Q4

REPORT INFORMATION
  Report Type: 
  Country: US (occurrence: US)
  Receive Date: 20120907
  Receipt Date: 20120907
  Transmission Date: 20130627
  Serious: Yes (Other)
  Sender: FDA-Public Use
  Company Number: CHPA2012US018772

PATIENT
  Age: 50 Year
  Sex: Female

DRUGS (14)
  1. EXCEDRIN ES BACK + BODY [Suspect]
     Indication: RHEUMATOID ARTHRITIS
     Dosage: 2 DF, QD
     Route: 048
  2. EXCEDRIN MIGRAINE [Suspect]
     Indication: MIGRAINE
     Dosage: 2 DF, PRN
     Route: 048
  3. TEGRETOL [Suspect]
     Indication: BIPOLAR DISORDER
     Dosage: Unk, Unk
     Route: 048
  4. VANQUISH [Concomitant]
     Dosage: Unk, Unk
  5. GABAPENTIN [Concomitant]
     Dosage: Unk, Unk
  6. SYNTHROID [Concomitant]
     Indication: HYPERTHYROIDISM
     Dosage: Unk, Unk
  7. EQUATE (ACETYLSALICYLIC ACID) [Concomitant]
     Dosage: Unk, Unk
  8. ESTRADIOL [Concomitant]
     Dosage: Unk, Unk
  9. ALLEGRA [Concomitant]
     Dosage: Unk, Unk
  10. CALTRATE [Concomitant]
     Dosage: Unk, Unk
  11. KLONOPIN [Concomitant]
     Indication: BIPOLAR DISORDER
     Dosage: Unk, Unk
  12. COMBIVENT                               /GFR/ [Concomitant]
     Indication: ASTHMA
     Dosage: Unk, Unk
  13. PROAIR (SALBUTAMOL SULFATE) [Concomitant]
     Indication: ASTHMA
     Dosage: Unk, Unk
  14. SINGULAIR [Concomitant]
     Indication: ASTHMA
     Dosage: Unk, Unk

REACTIONS (7)
  - Cardiac failure congestive [Not Recovered/Not Resolved]
  - Osteopenia [Not Recovered/Not Resolved]
  - Rheumatoid arthritis [Not Recovered/Not Resolved]
  - Fibromyalgia [Not Recovered/Not Resolved]
  - Gastrooesophageal reflux disease [Not Recovered/Not Resolved]
  - Fatigue [Not Recovered/Not Resolved]
  - Urine odour abnormal [Not Recovered/Not Resolved]
